FAERS Safety Report 5939877-7 (Version None)
Quarter: 2008Q4

REPORT INFORMATION
  Report Type: 
  Country: None (occurrence: None)
  Receive Date: 20081104
  Receipt Date: 20081024
  Transmission Date: 20090506
  Serious: Yes (Other)
  Sender: FDA-Public Use
  Company Number: JP-BRISTOL-MYERS SQUIBB COMPANY-14384531

PATIENT
  Age: 77 Year
  Sex: Female

DRUGS (7)
  1. RESLIN [Suspect]
     Indication: OBSESSIVE-COMPULSIVE DISORDER
     Route: 048
  2. FLUVOXAMINE MALEATE [Interacting]
     Indication: OBSESSIVE-COMPULSIVE DISORDER
  3. PROPOFOL [Interacting]
  4. FENTANYL [Interacting]
  5. REMIFENTANIL HCL [Interacting]
  6. MUSCULAX [Concomitant]
  7. NAROPIN [Concomitant]

REACTIONS (2)
  - DELAYED RECOVERY FROM ANAESTHESIA [None]
  - DRUG INTERACTION [None]
